FAERS Safety Report 12596800 (Version 4)
Quarter: 2017Q3

REPORT INFORMATION
  Report Type: Spontaneous
  Country: US (occurrence: US)
  Receive Date: 20160727
  Receipt Date: 20170915
  Transmission Date: 20171127
  Serious: Yes (Other)
  Sender: FDA-Public Use
  Company Number: PHEH2016US018537

PATIENT
  Age: 57 Year
  Sex: Female

DRUGS (2)
  1. LENVATINIB [Suspect]
     Active Substance: LENVATINIB
     Indication: RENAL CELL CARCINOMA
     Dosage: 14 MG, QD
     Route: 048
     Dates: start: 20161201
  2. AFINITOR [Suspect]
     Active Substance: EVEROLIMUS
     Indication: RENAL CANCER
     Dosage: 5 MG, QD
     Route: 048

REACTIONS (15)
  - Metastases to bone [Unknown]
  - Hypersensitivity [Unknown]
  - Brain neoplasm [Unknown]
  - Movement disorder [Unknown]
  - Pain [Unknown]
  - Insomnia [Unknown]
  - Metastases to central nervous system [Unknown]
  - Appetite disorder [Unknown]
  - Dry mouth [Unknown]
  - Blister [Unknown]
  - Headache [Not Recovered/Not Resolved]
  - Nausea [Unknown]
  - Dyspnoea [Unknown]
  - Asthenia [Unknown]
  - Dysgeusia [Unknown]

NARRATIVE: CASE EVENT DATE: 20160802
